FAERS Safety Report 8991841 (Version 1)
Quarter: 2012Q4

REPORT INFORMATION
  Report Type: 
  Country: US (occurrence: US)
  Receive Date: 20121231
  Receipt Date: 20121231
  Transmission Date: 20130627
  Serious: No
  Sender: FDA-Public Use
  Company Number: US-JNJFOC-20121211878

PATIENT
  Age: 52 None
  Sex: Female

DRUGS (8)
  1. DURAGESIC [Suspect]
     Indication: NERVOUS SYSTEM DISORDER
     Route: 062
     Dates: start: 2011
  2. DURAGESIC [Suspect]
     Indication: NERVOUS SYSTEM DISORDER
     Route: 062
     Dates: start: 2011
  3. DURAGESIC [Suspect]
     Indication: FIBROMYALGIA
     Route: 062
     Dates: start: 2011
  4. DURAGESIC [Suspect]
     Indication: FIBROMYALGIA
     Route: 062
     Dates: start: 2011
  5. DURAGESIC [Suspect]
     Indication: NECK PAIN
     Route: 062
     Dates: start: 2011
  6. DURAGESIC [Suspect]
     Indication: NECK PAIN
     Route: 062
     Dates: start: 2011
  7. DURAGESIC [Suspect]
     Indication: BACK PAIN
     Route: 062
     Dates: start: 2011
  8. DURAGESIC [Suspect]
     Indication: BACK PAIN
     Route: 062
     Dates: start: 2011

REACTIONS (3)
  - Gastric disorder [Unknown]
  - Application site rash [Not Recovered/Not Resolved]
  - Drug dose omission [Not Recovered/Not Resolved]
